FAERS Safety Report 16329954 (Version 1)
Quarter: 2019Q2

REPORT INFORMATION
  Report Type: Spontaneous
  Country: JP (occurrence: JP)
  Receive Date: 20190520
  Receipt Date: 20190520
  Transmission Date: 20190711
  Serious: Yes (Other)
  Sender: FDA-Public Use
  Company Number: JP-GLAXOSMITHKLINE-JP2019JPN064258

PATIENT
  Age: 57 Year
  Sex: Female

DRUGS (7)
  1. SINGULAIR [Concomitant]
     Active Substance: MONTELUKAST SODIUM
     Indication: ASTHMA
     Dosage: 1 DF, 1D
     Dates: start: 20190325, end: 20190420
  2. MAOUTOU [Concomitant]
     Active Substance: HERBALS
     Indication: NASOPHARYNGITIS
     Dosage: 7.5 G, 1D
     Dates: start: 20190404, end: 20190408
  3. RELVAR ELLIPTA [Suspect]
     Active Substance: FLUTICASONE FUROATE\VILANTEROL TRIFENATATE
     Indication: ASTHMA
     Dosage: 200 ?G, 1D
     Route: 055
     Dates: start: 20190325, end: 20190407
  4. RELVAR ELLIPTA [Suspect]
     Active Substance: FLUTICASONE FUROATE\VILANTEROL TRIFENATATE
     Dosage: 100 ?G, 1D
     Route: 055
     Dates: start: 20190408
  5. SULTANOL INHALER [Concomitant]
     Indication: ASTHMA
     Dosage: 100 ?G, PRN
  6. UNICON [Concomitant]
     Active Substance: THEOPHYLLINE ANHYDROUS
     Indication: ASTHMA
     Dosage: 0.5 DF, 1D
     Dates: start: 20190325, end: 20190420
  7. CALONAL [Concomitant]
     Active Substance: ACETAMINOPHEN
     Dosage: 2 DF, PRN
     Dates: start: 20190404, end: 20190420

REACTIONS (8)
  - Hyperthermia [Recovering/Resolving]
  - Arthralgia [Recovering/Resolving]
  - Lymphadenopathy [Recovering/Resolving]
  - Sputum purulent [Recovering/Resolving]
  - Nasopharyngitis [Unknown]
  - Pharyngeal erythema [Recovering/Resolving]
  - Influenza [Unknown]
  - Pneumonia [Recovering/Resolving]

NARRATIVE: CASE EVENT DATE: 20190403
